FAERS Safety Report 6157583-3 (Version None)
Quarter: 2009Q2

REPORT INFORMATION
  Report Type: 
  Country: None (occurrence: None)
  Receive Date: 20090414
  Receipt Date: 20090406
  Transmission Date: 20091009
  Serious: Yes (Other)
  Sender: FDA-Public Use
  Company Number: CHPA2009US08959

PATIENT
  Age: 37 Year
  Sex: Female

DRUGS (1)
  1. THERAFLU NIGHTTIME SEVERE COLD + COUGH (NCH)(PARACETAMOL, DIPHENHYDRAM [Suspect]
     Indication: NASOPHARYNGITIS
     Dosage: 1 DF, QHS, ORAL
     Route: 048
     Dates: start: 20080101

REACTIONS (1)
  - COELIAC DISEASE [None]
